FAERS Safety Report 13876367 (Version 1)
Quarter: 2017Q3

REPORT INFORMATION
  Report Type: Spontaneous
  Country: US (occurrence: US)
  Receive Date: 20170817
  Receipt Date: 20170817
  Transmission Date: 20171127
  Serious: No
  Sender: FDA-Public Use
  Company Number: US-VERTEX PHARMACEUTICALS-2017-004399

PATIENT
  Sex: Female

DRUGS (3)
  1. CEFTAZIDIME. [Concomitant]
     Active Substance: CEFTAZIDIME
  2. ORKAMBI [Suspect]
     Active Substance: IVACAFTOR\LUMACAFTOR
     Indication: CYSTIC FIBROSIS
     Dosage: 2 TABS (200/ 125 MG EACH), BID
     Route: 048
  3. CAYSTON [Suspect]
     Active Substance: AZTREONAM
     Indication: PRODUCT USED FOR UNKNOWN INDICATION
     Route: 065

REACTIONS (2)
  - Respiration abnormal [Recovered/Resolved]
  - Pyrexia [Unknown]
